FAERS Safety Report 7176989-7 (Version None)
Quarter: 2010Q4

REPORT INFORMATION
  Report Type: 
  Country: None (occurrence: None)
  Receive Date: 20101220
  Receipt Date: 20101214
  Transmission Date: 20110411
  Serious: Yes (Death, Hospitalization)
  Sender: FDA-Public Use
  Company Number: US-JNJFOC-20101205985

PATIENT
  Sex: Female
  Weight: 45.36 kg

DRUGS (5)
  1. FENTANYL-100 [Suspect]
     Indication: PHANTOM PAIN
     Route: 062
  2. FENTANYL-100 [Suspect]
     Dosage: NDC: 0781-7112-55
     Route: 062
  3. FENTANYL-100 [Suspect]
     Indication: PHANTOM PAIN
     Route: 062
  4. FENTANYL-100 [Suspect]
     Route: 062
  5. TYLENOL W/ CODEINE [Concomitant]
     Indication: PHANTOM PAIN
     Route: 048

REACTIONS (7)
  - DEATH [None]
  - DEREALISATION [None]
  - DRUG DISPENSING ERROR [None]
  - DYSPNOEA [None]
  - GENERAL PHYSICAL HEALTH DETERIORATION [None]
  - OVERDOSE [None]
  - PRODUCT QUALITY ISSUE [None]
